FAERS Safety Report 10094888 (Version 1)
Quarter: 2014Q2

REPORT INFORMATION
  Report Type: Spontaneous
  Country: GB (occurrence: None)
  Receive Date: 20140418
  Receipt Date: 20140418
  Transmission Date: 20141212
  Serious: Yes (Hospitalization)
  Sender: FDA-Public Use
  Company Number: FK201401354

PATIENT
  Age: 88 Year
  Sex: Female

DRUGS (2)
  1. FUROSEMIDE [Suspect]
     Indication: PRODUCT USED FOR UNKNOWN INDICATION
     Dosage: 20 MG, 1 IN 1 D, UNKNOWN
     Dates: start: 201312
  2. CANDESARTAN (CANDESARTAN) [Concomitant]

REACTIONS (3)
  - Epistaxis [None]
  - Mouth haemorrhage [None]
  - Respiration abnormal [None]
